FAERS Safety Report 7589324-7 (Version None)
Quarter: 2011Q3

REPORT INFORMATION
  Report Type: 
  Country: None (occurrence: None)
  Receive Date: 20110705
  Receipt Date: 20110621
  Transmission Date: 20111222
  Serious: Yes (Life-Threatening, Hospitalization)
  Sender: FDA-Public Use
  Company Number: GB-PFIZER INC-2008020901

PATIENT
  Age: 60 Year
  Sex: Female
  Weight: 80 kg

DRUGS (11)
  1. ETANERCEPT [Suspect]
     Dosage: UNK
     Route: 058
     Dates: start: 20070101
  2. ATENOLOL [Concomitant]
  3. OMEPRAZOLE [Concomitant]
  4. ROSIGLITAZONE [Concomitant]
  5. ASPIRIN [Concomitant]
  6. MELOXICAM [Concomitant]
  7. FUROSEMIDE [Concomitant]
  8. METHOTREXATE [Suspect]
     Dosage: 7.5 MG, WEEKLY
     Dates: start: 20071201
  9. GLICLAZIDE [Concomitant]
  10. ROSUVASTATIN [Concomitant]
  11. PREDNISOLONE [Suspect]
     Dates: start: 20080121

REACTIONS (3)
  - SEPSIS [None]
  - BETA HAEMOLYTIC STREPTOCOCCAL INFECTION [None]
  - MULTI-ORGAN FAILURE [None]
